FAERS Safety Report 9316263 (Version 1)
Quarter: 2013Q2

REPORT INFORMATION
  Report Type: Spontaneous
  Country: FR (occurrence: None)
  Receive Date: 20130521
  Receipt Date: 20130521
  Transmission Date: 20140414
  Serious: Yes (Hospitalization)
  Sender: FDA-Public Use
  Company Number: DSM-2013-00475

PATIENT
  Age: 79 Year
  Sex: Female

DRUGS (7)
  1. COOLMETEC (HYDROCHLOROTHIAZIDE, OLMESARTAN MEDOXOMIL) (TABLET) (HYDROCHLOROTHIAZIDE, OLMESARTAN MEDOXOMIL) [Suspect]
     Indication: HYPERTENSION
     Dosage: 40/? MG (1 IN 1 D), ORAL
     Route: 048
     Dates: start: 20130424, end: 20130425
  2. EXELON(RIVASTIGMINE)(TRANSDERMAL PATCH)(RIVASTIGMINE) [Concomitant]
  3. CACIT D3(COLECALCIFEROL, CALCIUM CARBONATE)(COLECALCIFEROL, CALCIUM CARBONATE) [Concomitant]
  4. NEOMERCAZOLE(CARBIMAZOLE)(5 MILLIGRAM)(CARBIMAZOLE) [Concomitant]
  5. AVLOCARDYL (PROPRANOLOL) (40 MILLIGRAM) (PROPRANOLOL) [Concomitant]
  6. FUROSEMIDE(FUROSEMIDE)(40 MILLIGRAM)(FUROSEMIDE) [Concomitant]
  7. KARDEGIC (ACETYLSALICYLATE LYSINE) (160 MILLIGRAM) (ACETYLSALICYLATE LYSINE) [Concomitant]

REACTIONS (4)
  - Dizziness [None]
  - Malaise [None]
  - Vomiting [None]
  - Fall [None]
